FAERS Safety Report 9154044 (Version 1)
Quarter: 2013Q1

REPORT INFORMATION
  Report Type: Spontaneous
  Country: US (occurrence: None)
  Receive Date: 20130308
  Receipt Date: 20130308
  Transmission Date: 20140127
  Serious: Yes (Hospitalization)
  Sender: FDA-Public Use
  Company Number: None

PATIENT
  Age: 52 Year
  Sex: Female
  Weight: 89.7 kg

DRUGS (16)
  1. PERTUZUMAB [Suspect]
     Route: 042
  2. TRASTUZUMAB [Suspect]
     Route: 042
  3. ZOFRAN [Concomitant]
  4. LORAZEPAM [Concomitant]
  5. IBUPROFEN [Concomitant]
  6. FERROUS SULFATE [Concomitant]
  7. ZANTAC [Concomitant]
  8. VITAMIN B1 [Concomitant]
  9. CALCIUM AND VITAMIN D [Concomitant]
  10. ALEVE [Concomitant]
  11. VITAMIN C [Concomitant]
  12. ZOMETA [Concomitant]
  13. FASLODEX [Concomitant]
  14. HERCEPTIN [Concomitant]
  15. HCTZ [Concomitant]
  16. PREDNISONE PREP [Concomitant]

REACTIONS (4)
  - Hemiparesis [None]
  - Paraesthesia [None]
  - Vision blurred [None]
  - Hypokalaemia [None]
